FAERS Safety Report 8543184-6 (Version None)
Quarter: 2012Q3

REPORT INFORMATION
  Report Type: 
  Country: None (occurrence: None)
  Receive Date: 20120727
  Receipt Date: 20120724
  Transmission Date: 20120928
  Serious: Yes (Hospitalization)
  Sender: FDA-Public Use
  Company Number: CH-009507513-1207CHE009925

PATIENT

DRUGS (7)
  1. REMERON [Suspect]
     Dosage: 30 MG, QD
     Route: 048
     Dates: start: 20110101
  2. VALPROATE SODIUM [Suspect]
     Dosage: 300 MG, BID
     Dates: start: 20080101
  3. PANTOPRAZOLE [Concomitant]
     Indication: GASTROSTOMY
     Dosage: 40 MG, QD
  4. AXURA [Concomitant]
     Indication: GASTROSTOMY
     Dosage: 10 MG, BID
  5. CLOZAPINE [Concomitant]
     Indication: GASTROSTOMY
     Dosage: 300 MG, QD
  6. MUCOFLUID [Concomitant]
     Indication: GASTROSTOMY
     Dosage: 600 MG, QD
  7. THIAMINE [Concomitant]
     Indication: GASTROSTOMY
     Dosage: 300 MG, QD

REACTIONS (2)
  - HAEMATEMESIS [None]
  - UPPER GASTROINTESTINAL HAEMORRHAGE [None]
